FAERS Safety Report 25445577 (Version 1)
Quarter: 2025Q2

REPORT INFORMATION
  Report Type: Spontaneous
  Country: CN (occurrence: CN)
  Receive Date: 20250617
  Receipt Date: 20250617
  Transmission Date: 20250716
  Serious: Yes (Life-Threatening, Hospitalization)
  Sender: PFIZER
  Company Number: CN-PFIZER INC-PV202500070936

PATIENT
  Age: 46 Year
  Sex: Male
  Weight: 86 kg

DRUGS (6)
  1. CYTARABINE [Suspect]
     Active Substance: CYTARABINE
     Indication: Acute lymphocytic leukaemia
     Dosage: 3 G, 2X/DAY
     Route: 041
     Dates: start: 20250524, end: 20250525
  2. CYTARABINE [Suspect]
     Active Substance: CYTARABINE
     Dosage: 50 MG, 1X/DAY
     Route: 037
     Dates: start: 20250531, end: 20250531
  3. METHOTREXATE SODIUM [Suspect]
     Active Substance: METHOTREXATE SODIUM
     Indication: Acute lymphocytic leukaemia
     Dosage: 1 G, 1X/DAY
     Route: 041
     Dates: start: 20250523, end: 20250523
  4. METHOTREXATE [Suspect]
     Active Substance: METHOTREXATE
     Indication: Acute lymphocytic leukaemia
     Dosage: 10 MG, 1X/DAY
     Route: 037
     Dates: start: 20250531, end: 20250531
  5. LEUCOVORIN CALCIUM [Concomitant]
     Active Substance: LEUCOVORIN CALCIUM
     Indication: Detoxification
     Route: 041
     Dates: start: 20250523, end: 20250523
  6. DEXAMETHASONE SODIUM PHOSPHATE [Concomitant]
     Active Substance: DEXAMETHASONE SODIUM PHOSPHATE
     Indication: Acute lymphocytic leukaemia
     Dosage: 5 MG, 1X/DAY
     Route: 037
     Dates: start: 20250531, end: 20250531

REACTIONS (4)
  - White blood cell count decreased [Recovered/Resolved]
  - Neutrophil count decreased [Recovered/Resolved]
  - Myelosuppression [Recovered/Resolved]
  - Pyrexia [Recovered/Resolved]

NARRATIVE: CASE EVENT DATE: 20250603
